FAERS Safety Report 11858904 (Version 5)
Quarter: 2016Q1

REPORT INFORMATION
  Report Type: Spontaneous
  Country: JP (occurrence: JP)
  Receive Date: 20151222
  Receipt Date: 20160307
  Transmission Date: 20160526
  Serious: Yes (Death, Hospitalization)
  Sender: FDA-Public Use
  Company Number: JP-ACTELION-A-CH2015-128787

PATIENT
  Age: 65 Year
  Sex: Female
  Weight: 39 kg

DRUGS (14)
  1. DENOSUMAB [Concomitant]
     Active Substance: DENOSUMAB
  2. OXYGEN. [Concomitant]
     Active Substance: OXYGEN
  3. REVATIO [Concomitant]
     Active Substance: SILDENAFIL CITRATE
     Indication: PULMONARY ARTERIAL HYPERTENSION
     Route: 048
  4. EPOPROSTENOL ACT [Suspect]
     Active Substance: EPOPROSTENOL
     Dosage: .97 MG, QD
     Route: 042
     Dates: start: 20130911
  5. AMLODIPINE [Concomitant]
     Active Substance: AMLODIPINE BESYLATE
  6. EPOPROSTENOL ACT [Suspect]
     Active Substance: EPOPROSTENOL
     Indication: PULMONARY ARTERIAL HYPERTENSION
     Dosage: 1.5 MG, QD
     Route: 042
     Dates: start: 20150702
  7. OLMESARTAN MEDOXOMIL. [Concomitant]
     Active Substance: OLMESARTAN MEDOXOMIL
  8. THYROID [Concomitant]
     Active Substance: LEVOTHYROXINE\LIOTHYRONINE
  9. TRACLEER [Suspect]
     Active Substance: BOSENTAN
     Indication: PULMONARY ARTERIAL HYPERTENSION
     Dosage: 125 MG, BID
     Route: 048
  10. HYALURONATE SODIUM [Concomitant]
     Active Substance: HYALURONATE SODIUM
  11. EPOPROSTENOL ACT [Suspect]
     Active Substance: EPOPROSTENOL
     Dosage: 2.23 MG, QD
     Route: 042
  12. FUROSEMIDE. [Concomitant]
     Active Substance: FUROSEMIDE
  13. SPIRONOLACTONE. [Concomitant]
     Active Substance: SPIRONOLACTONE
  14. CHOLECALCIFEROL [Concomitant]
     Active Substance: CHOLECALCIFEROL

REACTIONS (13)
  - Pneumonia [Recovered/Resolved]
  - Cardiac failure [Fatal]
  - Dyspnoea [Fatal]
  - Palpitations [Fatal]
  - Platelet count decreased [Fatal]
  - Paracentesis [Unknown]
  - Ascites [Fatal]
  - White blood cell count decreased [Fatal]
  - Haemoglobin decreased [Fatal]
  - Multiple organ dysfunction syndrome [Fatal]
  - Malaise [Fatal]
  - Circulatory collapse [Fatal]
  - Red blood cell count decreased [Fatal]

NARRATIVE: CASE EVENT DATE: 20150621
